FAERS Safety Report 8959479 (Version 1)
Quarter: 2012Q4

REPORT INFORMATION
  Report Type: 
  Country: US (occurrence: US)
  Receive Date: 20121212
  Receipt Date: 20121212
  Transmission Date: 20130627
  Serious: Yes (Other)
  Sender: FDA-Public Use
  Company Number: US-RANBAXY-2012US-62858

PATIENT
  Sex: Male

DRUGS (1)
  1. ATORVASTATIN [Suspect]
     Indication: BLOOD CHOLESTEROL
     Dosage: 20 mg, qd
     Route: 065
     Dates: start: 20121123

REACTIONS (4)
  - Chest pain [Recovered/Resolved]
  - Parosmia [Unknown]
  - Headache [Unknown]
  - Palpitations [Unknown]
